FAERS Safety Report 15237880 (Version 2)
Quarter: 2018Q3

REPORT INFORMATION
  Report Type: Spontaneous
  Country: ES (occurrence: ES)
  Receive Date: 20180803
  Receipt Date: 20180905
  Transmission Date: 20181010
  Serious: Yes (Other)
  Sender: FDA-Public Use
  Company Number: PHHY2018ES060987

PATIENT
  Age: 12 Year
  Sex: Male

DRUGS (3)
  1. IBUPROFEN. [Suspect]
     Active Substance: IBUPROFEN
     Indication: RESPIRATORY TRACT INFECTION
     Dosage: 400 MG, UNK (ADMINISTERED AT INCREMENTAL DOSES AT AN INTERVAL OF 90 MINUTES ON 2 CONSECUTIVE DAYS)
     Route: 048
  2. IBUPROFEN. [Suspect]
     Active Substance: IBUPROFEN
     Indication: DRUG PROVOCATION TEST
  3. PARACETAMOL [Suspect]
     Active Substance: ACETAMINOPHEN
     Indication: RESPIRATORY TRACT INFECTION
     Dosage: UNK
     Route: 065

REACTIONS (5)
  - Therapeutic product cross-reactivity [Unknown]
  - Urticaria [Unknown]
  - Pruritus [Unknown]
  - Angioedema [Unknown]
  - Drug hypersensitivity [Unknown]
